FAERS Safety Report 21773119 (Version 4)
Quarter: 2023Q1

REPORT INFORMATION
  Report Type: Report from Study
  Country: US (occurrence: US)
  Receive Date: 20221223
  Receipt Date: 20230215
  Transmission Date: 20230418
  Serious: Yes (Hospitalization, Other)
  Sender: FDA-Public Use
  Company Number: US-JNJFOC-20220946675

PATIENT
  Age: 68 Year
  Sex: Female

DRUGS (4)
  1. STELARA [Suspect]
     Active Substance: USTEKINUMAB
     Indication: Crohn^s disease
     Route: 058
     Dates: start: 20220103
  2. STELARA [Suspect]
     Active Substance: USTEKINUMAB
     Dosage: 11/NOV/2022
     Route: 058
  3. STELARA [Suspect]
     Active Substance: USTEKINUMAB
     Route: 058
  4. STELARA [Suspect]
     Active Substance: USTEKINUMAB
     Route: 058
     Dates: start: 20230106

REACTIONS (10)
  - Influenza like illness [Recovering/Resolving]
  - Back pain [Not Recovered/Not Resolved]
  - Visual impairment [Unknown]
  - Blood pressure increased [Unknown]
  - Hernia pain [Not Recovered/Not Resolved]
  - Constipation [Recovering/Resolving]
  - Crohn^s disease [Recovered/Resolved]
  - Arthritis [Not Recovered/Not Resolved]
  - Hypoaesthesia [Unknown]
  - Off label use [Unknown]

NARRATIVE: CASE EVENT DATE: 20220101
